FAERS Safety Report 13096409 (Version 2)
Quarter: 2017Q2

REPORT INFORMATION
  Report Type: Report from Study
  Country: CA (occurrence: CA)
  Receive Date: 20170109
  Receipt Date: 20170410
  Transmission Date: 20170830
  Serious: Yes (Other)
  Sender: FDA-Public Use
  Company Number: PHHY2011CA53312

PATIENT
  Age: 51 Year
  Sex: Male

DRUGS (4)
  1. SANDOSTATIN LAR DEPOT [Suspect]
     Active Substance: OCTREOTIDE ACETATE
     Indication: ACROMEGALY
     Dosage: 30 MG, TIW (EVERY THREE WEEKS)
     Route: 030
     Dates: start: 19990101
  2. CEPHALEXIN. [Concomitant]
     Active Substance: CEPHALEXIN
     Indication: PRODUCT USED FOR UNKNOWN INDICATION
     Dosage: 500 MG, BID
     Route: 048
     Dates: start: 20161230
  3. SANDOSTATIN LAR DEPOT [Suspect]
     Active Substance: OCTREOTIDE ACETATE
     Dosage: 30 MG, TIW (EVERY THREE WEEKS)
     Route: 030
     Dates: start: 20130519
  4. SANDOSTATIN LAR DEPOT [Suspect]
     Active Substance: OCTREOTIDE ACETATE
     Dosage: 30 MG, TIW (EVERY THREE WEEKS)
     Route: 030
     Dates: start: 20170402

REACTIONS (16)
  - Injection site pain [Recovered/Resolved]
  - Lower respiratory tract infection [Unknown]
  - Blood pressure systolic increased [Unknown]
  - Asthma [Unknown]
  - Productive cough [Unknown]
  - Folliculitis [Unknown]
  - Influenza [Unknown]
  - Viral upper respiratory tract infection [Unknown]
  - Blood pressure increased [Unknown]
  - Inappropriate schedule of drug administration [Unknown]
  - Injection site mass [Recovering/Resolving]
  - Product container issue [Unknown]
  - Pain [Recovering/Resolving]
  - Ear swelling [Unknown]
  - Fall [Unknown]
  - Musculoskeletal pain [Recovering/Resolving]

NARRATIVE: CASE EVENT DATE: 20121015
